FAERS Safety Report 6742778-8 (Version None)
Quarter: 2010Q2

REPORT INFORMATION
  Report Type: 
  Country: None (occurrence: None)
  Receive Date: 20100525
  Receipt Date: 20100511
  Transmission Date: 20101027
  Serious: Yes (Life-Threatening, Other)
  Sender: FDA-Public Use
  Company Number: 011780

PATIENT
  Sex: Female
  Weight: 88.9 kg

DRUGS (3)
  1. LACOSAMIDE [Suspect]
     Indication: EPILEPSY
     Dosage: 250 MG BID ORAL
     Route: 048
     Dates: start: 20090917
  2. KEPPRA [Concomitant]
  3. LAMICTAL [Concomitant]

REACTIONS (2)
  - LETHARGY [None]
  - STATUS EPILEPTICUS [None]
